FAERS Safety Report 8810701 (Version 1)
Quarter: 2012Q4

REPORT INFORMATION
  Report Type: Spontaneous
  Country: US (occurrence: None)
  Receive Date: 20120924
  Receipt Date: 20120924
  Transmission Date: 20130627
  Serious: Yes (Other)
  Sender: FDA-Public Use
  Company Number: None

PATIENT
  Age: 25 Year
  Sex: Female
  Weight: 92.53 kg

DRUGS (1)
  1. MIRENA [Suspect]
     Dates: start: 20100228, end: 20120309

REACTIONS (17)
  - Dyspnoea [None]
  - Palpitations [None]
  - Chest pain [None]
  - Dizziness [None]
  - Lymphadenopathy [None]
  - Nausea [None]
  - Mass [None]
  - Migraine [None]
  - Dry mouth [None]
  - Multiple chemical sensitivity [None]
  - Anxiety [None]
  - Mitral valve incompetence [None]
  - Asthma [None]
  - Rash [None]
  - Pyrexia [None]
  - Vision blurred [None]
  - White blood cell count increased [None]
